FAERS Safety Report 5244136-4 (Version None)
Quarter: 2007Q1

REPORT INFORMATION
  Report Type: 
  Country: None (occurrence: None)
  Receive Date: 20061201
  Receipt Date: 20060830
  Transmission Date: 20070707
  Serious: No
  Sender: FDA-Public Use
  Company Number: 2006PV020452

PATIENT
  Age: 60 Year
  Sex: Female
  Weight: 99.7913 kg

DRUGS (3)
  1. BYETTA [Suspect]
     Indication: DIABETES MELLITUS
     Dosage: 5 MCG;BID;SC
     Route: 058
     Dates: start: 20060823
  2. LISINOPRIL [Suspect]
     Indication: HYPERTENSION
     Dosage: 10 MG;QD;PO
     Route: 048
     Dates: start: 20060822, end: 20060826
  3. GLUCOPHAGE [Concomitant]

REACTIONS (4)
  - COUGH [None]
  - HEART RATE INCREASED [None]
  - PALPITATIONS [None]
  - WEIGHT DECREASED [None]
